FAERS Safety Report 7124550-2 (Version None)
Quarter: 2010Q4

REPORT INFORMATION
  Report Type: 
  Country: None (occurrence: None)
  Receive Date: 20101128
  Receipt Date: 20101027
  Transmission Date: 20110411
  Serious: Yes (Other)
  Sender: FDA-Public Use
  Company Number: GB-AMGEN-GBRCT2010001695

PATIENT

DRUGS (5)
  1. ETANERCEPT [Suspect]
     Indication: RHEUMATOID ARTHRITIS
     Dosage: 25 MG, BID
     Dates: start: 20041115, end: 20050615
  2. METOCLOPRAMIDE [Concomitant]
     Dosage: UNKNOWN
  3. LUSTRAL [Concomitant]
     Dosage: UNKNOWN
  4. METHOTREXATE [Concomitant]
     Dosage: UNKNOWN
     Dates: start: 20041015
  5. FOLIC ACID [Concomitant]
     Dosage: UNKNOWN

REACTIONS (1)
  - BLADDER CANCER RECURRENT [None]
